FAERS Safety Report 8762498 (Version 2)
Quarter: 2012Q4

REPORT INFORMATION
  Report Type: 
  Country: US (occurrence: US)
  Receive Date: 20120830
  Receipt Date: 20121030
  Transmission Date: 20130627
  Serious: No
  Sender: FDA-Public Use
  Company Number: US-PFIZER INC-2012211284

PATIENT
  Age: 43 Year
  Sex: Female
  Weight: 65.76 kg

DRUGS (1)
  1. PREMARIN VAGINAL CREAM [Suspect]
     Indication: MENOPAUSE
     Dosage: small amount , 2x/day
     Route: 067
     Dates: start: 20120807, end: 20120808

REACTIONS (3)
  - Vulvovaginal burning sensation [Recovered/Resolved]
  - Vulvovaginal pain [Unknown]
  - Vulvovaginal discomfort [Unknown]
